FAERS Safety Report 9416533 (Version 1)
Quarter: 2013Q3

REPORT INFORMATION
  Report Type: Spontaneous
  Country: BR (occurrence: BR)
  Receive Date: 20130724
  Receipt Date: 20130724
  Transmission Date: 20140515
  Serious: Yes (Death, Hospitalization)
  Sender: FDA-Public Use
  Company Number: BR-JNJFOC-20130710566

PATIENT
  Age: 46 Year
  Sex: Male
  Weight: 80 kg

DRUGS (8)
  1. XARELTO [Suspect]
     Indication: THROMBOSIS PROPHYLAXIS
     Route: 048
     Dates: start: 20130329, end: 20130605
  2. XARELTO [Suspect]
     Indication: THROMBOSIS PROPHYLAXIS
     Route: 048
     Dates: start: 20130308, end: 20130328
  3. XARELTO [Suspect]
     Indication: THROMBOSIS
     Route: 048
     Dates: start: 20130329, end: 20130605
  4. XARELTO [Suspect]
     Indication: THROMBOSIS
     Route: 048
     Dates: start: 20130308, end: 20130328
  5. ANTUX [Concomitant]
     Indication: DYSPNOEA
     Route: 048
     Dates: end: 20130604
  6. ALINIA [Concomitant]
     Indication: DYSPNOEA
     Route: 055
     Dates: end: 20130604
  7. BEROTEC [Concomitant]
     Indication: DYSPNOEA
     Route: 055
     Dates: end: 20130604
  8. ATROVENT [Concomitant]
     Indication: DYSPNOEA
     Route: 055
     Dates: end: 20130604

REACTIONS (2)
  - Pulmonary embolism [Fatal]
  - Cardiac arrest [Fatal]
